FAERS Safety Report 6946551-7 (Version None)
Quarter: 2010Q3

REPORT INFORMATION
  Report Type: 
  Country: None (occurrence: None)
  Receive Date: 20100824
  Receipt Date: 20100809
  Transmission Date: 20110219
  Serious: Yes (Hospitalization)
  Sender: FDA-Public Use
  Company Number: 2010AM002804

PATIENT
  Age: 74 Year
  Sex: Female

DRUGS (13)
  1. SYMLIN [Suspect]
     Indication: TYPE 1 DIABETES MELLITUS
     Dosage: TID; SC
     Route: 058
     Dates: end: 20090101
  2. SYMLIN [Suspect]
     Dosage: 90 MCG; TID; SC, 60 MCG; TID; SC, 30 MCG; TID; SC
     Route: 058
  3. SYMLIN [Suspect]
     Dosage: 90 MCG; TID; SC, 60 MCG; TID; SC, 30 MCG; TID; SC
     Route: 058
  4. SYMLIN [Suspect]
     Dosage: 90 MCG; TID; SC, 60 MCG; TID; SC, 30 MCG; TID; SC
     Route: 058
  5. APIDRA [Concomitant]
  6. COZAAR [Concomitant]
  7. CARDIZEM [Concomitant]
  8. THYROID [Concomitant]
  9. ASPIRIN [Concomitant]
  10. ELAVIL [Concomitant]
  11. XANAX [Concomitant]
  12. XOPENEX [Concomitant]
  13. LASIX [Concomitant]

REACTIONS (14)
  - BACK PAIN [None]
  - BLOOD CREATININE INCREASED [None]
  - BLOOD GLUCOSE INCREASED [None]
  - CARDIAC FAILURE [None]
  - CEREBROVASCULAR ACCIDENT [None]
  - DIZZINESS [None]
  - FALL [None]
  - KIDNEY INFECTION [None]
  - NAUSEA [None]
  - PNEUMONIA [None]
  - RENAL DISORDER [None]
  - TACHYCARDIA [None]
  - WEIGHT DECREASED [None]
  - WHEEZING [None]
